FAERS Safety Report 9172226 (Version 3)
Quarter: 2013Q2

REPORT INFORMATION
  Report Type: Spontaneous
  Country: US (occurrence: US)
  Receive Date: 20130319
  Receipt Date: 20130506
  Transmission Date: 20140414
  Serious: Yes (Death)
  Sender: FDA-Public Use
  Company Number: US-AMGEN-USASP2013019128

PATIENT
  Age: 72 Year
  Sex: Female
  Weight: 104.9 kg

DRUGS (1)
  1. PROCRIT [Suspect]
     Indication: PRODUCT USED FOR UNKNOWN INDICATION
     Dosage: UNK

REACTIONS (4)
  - Septic shock [Fatal]
  - Sepsis [Fatal]
  - Myelodysplastic syndrome [Fatal]
  - Leukaemia [Fatal]
